FAERS Safety Report 12372141 (Version 1)
Quarter: 2016Q2

REPORT INFORMATION
  Report Type: Spontaneous
  Country: AU (occurrence: AU)
  Receive Date: 20160516
  Receipt Date: 20160516
  Transmission Date: 20160815
  Serious: Yes (Other)
  Sender: FDA-Public Use
  Company Number: AU-PFIZER INC-2016251435

PATIENT
  Sex: Female

DRUGS (13)
  1. MELATONIN [Concomitant]
     Active Substance: MELATONIN
  2. CLOPIDOGREL [Concomitant]
     Active Substance: CLOPIDOGREL BISULFATE
  3. LYRICA [Suspect]
     Active Substance: PREGABALIN
     Dosage: 75 MG, AT NIGHT
  4. IRBESARTAN. [Concomitant]
     Active Substance: IRBESARTAN
  5. THYROXINE SODIUM [Concomitant]
     Active Substance: LEVOTHYROXINE SODIUM
  6. SULFASALAZINE. [Concomitant]
     Active Substance: SULFASALAZINE
  7. DIAZEPAM. [Concomitant]
     Active Substance: DIAZEPAM
     Dosage: 10 MG, IN THE EVENING
  8. LYRICA [Suspect]
     Active Substance: PREGABALIN
     Dosage: 75MG AT NIGHT AND 25MG IN THE MORNING
  9. VALACICLOVIR [Concomitant]
     Active Substance: VALACYCLOVIR HYDROCHLORIDE
  10. AMITRIPTYLINE [Concomitant]
     Active Substance: AMITRIPTYLINE
  11. OXAZEPAM. [Concomitant]
     Active Substance: OXAZEPAM
  12. OXYCODONE [Concomitant]
     Active Substance: OXYCODONE
  13. TOPIRAMATE. [Concomitant]
     Active Substance: TOPIRAMATE

REACTIONS (3)
  - Sensory loss [Unknown]
  - Migraine [Unknown]
  - Facial paralysis [Unknown]
